FAERS Safety Report 26021997 (Version 1)
Quarter: 2025Q4

REPORT INFORMATION
  Report Type: Spontaneous
  Country: EU (occurrence: EU)
  Receive Date: 20251110
  Receipt Date: 20251110
  Transmission Date: 20260118
  Serious: Yes (Hospitalization)
  Sender: AMGEN
  Company Number: EU-AMGEN-ESPSP2025218368

PATIENT
  Age: 27 Year
  Sex: Female
  Weight: 58 kg

DRUGS (3)
  1. ADALIMUMAB [Suspect]
     Active Substance: ADALIMUMAB
     Indication: Crohn^s disease
     Dosage: 160 MILLIGRAM
     Route: 058
     Dates: start: 202502, end: 2025
  2. ADALIMUMAB [Suspect]
     Active Substance: ADALIMUMAB
     Dosage: 80 MILLIGRAM
     Route: 058
     Dates: start: 2025, end: 2025
  3. ADALIMUMAB [Suspect]
     Active Substance: ADALIMUMAB
     Dosage: 40 MILLIGRAM, Q2WK
     Route: 058
     Dates: start: 2025, end: 202505

REACTIONS (8)
  - Crohn^s disease [Recovering/Resolving]
  - Optic neuritis [Unknown]
  - Inflammation [Recovering/Resolving]
  - Pelvic mass [Recovering/Resolving]
  - Abscess [Unknown]
  - Epstein-Barr virus antibody positive [Unknown]
  - Pelvic fluid collection [Not Recovered/Not Resolved]
  - Off label use [Unknown]

NARRATIVE: CASE EVENT DATE: 20250501
